FAERS Safety Report 8600617 (Version 2)
Quarter: 2013Q3

REPORT INFORMATION
  Report Type: Report from Study
  Country: DE (occurrence: DE)
  Receive Date: 20120606
  Receipt Date: 20130827
  Transmission Date: 20140515
  Serious: Yes (Hospitalization)
  Sender: FDA-Public Use
  Company Number: PHHO2012DE008392

PATIENT
  Age: 63 Year
  Sex: Female
  Weight: 58.5 kg

DRUGS (7)
  1. ACLASTA/ZOLEDRONATE [Suspect]
     Indication: OSTEOPOROSIS PROPHYLAXIS
     Dosage: UNK
     Dates: start: 20110329
  2. ACLASTA [Suspect]
     Indication: OSTEOPOROSIS PROPHYLAXIS
     Dosage: 100 ML, QD
     Route: 042
     Dates: start: 20120327
  3. REBIF [Concomitant]
     Indication: MULTIPLE SCLEROSIS
     Dosage: 44 MG, TID
     Route: 058
     Dates: start: 200503
  4. TAMSULOSIN [Concomitant]
     Indication: INCONTINENCE
     Dosage: 4 MG, QD
     Route: 048
     Dates: start: 2004
  5. CIPRALEX [Concomitant]
     Indication: DEPRESSION
     Dosage: 10 MG, QD
     Route: 048
     Dates: start: 201009
  6. CALCIUM [Concomitant]
     Indication: OSTEOPOROSIS
     Dosage: 500 MG, QD
     Route: 048
     Dates: start: 201103
  7. VITAMIN D [Concomitant]
     Indication: OSTEOPOROSIS
     Dosage: 400 IE, QD
     Route: 048
     Dates: start: 201103

REACTIONS (1)
  - Loss of consciousness [Recovered/Resolved]
